FAERS Safety Report 23295749 (Version 1)
Quarter: 2023Q4

REPORT INFORMATION
  Report Type: Spontaneous
  Country: US (occurrence: None)
  Receive Date: 20231213
  Receipt Date: 20231213
  Transmission Date: 20240110
  Serious: No
  Sender: FDA-Public Use
  Company Number: None

PATIENT
  Age: 67 Year
  Sex: Female
  Weight: 76.5 kg

DRUGS (5)
  1. AZITHROMYCIN [Suspect]
     Active Substance: AZITHROMYCIN
     Indication: Sinusitis
     Dosage: OTHER QUANTITY : 2 TABLET(S);?FREQUENCY : DAILY;?
     Route: 048
     Dates: start: 20231210, end: 20231211
  2. rosuvistatin [Concomitant]
  3. MULTI-VITAMIN [Concomitant]
     Active Substance: .ALPHA.-TOCOPHEROL ACETATE, DL-\ASCORBIC ACID\CYANOCOBALAMIN\FLUORIDE ION\FOLIC ACID\NIACIN\PYRIDOXI
  4. VITAMIN D3 [Concomitant]
     Active Substance: CHOLECALCIFEROL
  5. COENZYME Q10 [Concomitant]
     Active Substance: DIETARY SUPPLEMENT\UBIDECARENONE

REACTIONS (3)
  - Nausea [None]
  - Diarrhoea [None]
  - Vomiting [None]

NARRATIVE: CASE EVENT DATE: 20231211
